FAERS Safety Report 9394872 (Version 7)
Quarter: 2014Q2

REPORT INFORMATION
  Report Type: Spontaneous
  Country: US (occurrence: US)
  Receive Date: 20130711
  Receipt Date: 20140627
  Transmission Date: 20141212
  Serious: Yes (Other)
  Sender: FDA-Public Use
  Company Number: US-PFIZER INC-2013202413

PATIENT
  Age: 45 Year
  Sex: Female
  Weight: 48 kg

DRUGS (11)
  1. LIPITOR [Suspect]
     Indication: LOW DENSITY LIPOPROTEIN INCREASED
     Dosage: 40 MG, 1X/DAY (AT BED TIME)
     Route: 048
     Dates: start: 200901, end: 201008
  2. LIPITOR [Suspect]
     Indication: CARDIOVASCULAR EVENT PROPHYLAXIS
  3. PLAVIX [Concomitant]
     Dosage: 75 MG, DAILY
  4. LASIX [Concomitant]
     Dosage: 40 MG, DAILY
  5. SPIRONOLACTONE [Concomitant]
     Dosage: 50 MG, DAILY
  6. ASPIRIN [Concomitant]
     Indication: PROPHYLAXIS
     Dosage: 81 MG, 1X/DAY
     Dates: start: 200901
  7. ENALAPRIL [Concomitant]
     Dosage: 5 MG, 2X/DAY
  8. METOPROLOL [Concomitant]
     Dosage: 75 MG, UNK
  9. JANUVIA [Concomitant]
     Dosage: 100 MG, DAILY
  10. PEPCID [Concomitant]
     Dosage: 20 MG, 2X/DAY
  11. MULTIVITAMINS [Concomitant]
     Indication: PROPHYLAXIS
     Dosage: 1 DF, DAILY (ONE PILL PER DAY)
     Dates: start: 201001

REACTIONS (1)
  - Type 2 diabetes mellitus [Not Recovered/Not Resolved]
